FAERS Safety Report 22324114 (Version 1)
Quarter: 2023Q2

REPORT INFORMATION
  Report Type: Spontaneous
  Country: US (occurrence: US)
  Receive Date: 20230516
  Receipt Date: 20230516
  Transmission Date: 20230722
  Serious: No
  Sender: FDA-Public Use
  Company Number: US-UNITED THERAPEUTICS-UNT-2023-000228

PATIENT
  Age: 67 Year
  Sex: Male

DRUGS (5)
  1. TYVASO DPI [Suspect]
     Active Substance: TREPROSTINIL
     Indication: Idiopathic pulmonary fibrosis
     Dosage: 48 ?G, QID
  2. TYVASO DPI [Suspect]
     Active Substance: TREPROSTINIL
     Dosage: UNK
     Dates: start: 202210
  3. TYVASO DPI [Suspect]
     Active Substance: TREPROSTINIL
     Indication: Idiopathic pulmonary fibrosis
     Dosage: UNK
  4. OFEV [Suspect]
     Active Substance: NINTEDANIB
     Indication: Idiopathic pulmonary fibrosis
     Dosage: 150 MG, Q12H
     Route: 048
  5. OFEV [Suspect]
     Active Substance: NINTEDANIB
     Dosage: 100 MG, Q12H
     Route: 048
     Dates: start: 202209, end: 202301

REACTIONS (6)
  - Nausea [Unknown]
  - Vomiting [Unknown]
  - Diarrhoea [Unknown]
  - Abdominal pain upper [Unknown]
  - Idiopathic pulmonary fibrosis [Unknown]
  - Off label use [Unknown]

NARRATIVE: CASE EVENT DATE: 20221001
